FAERS Safety Report 5222743-2 (Version None)
Quarter: 2007Q1

REPORT INFORMATION
  Report Type: 
  Country: None (occurrence: None)
  Receive Date: 20070129
  Receipt Date: 20070126
  Transmission Date: 20070707
  Serious: Yes (Death, Hospitalization)
  Sender: FDA-Public Use
  Company Number: DE-ROXANE LABORATORIES, INC-2005-DE-03936DE

PATIENT
  Sex: Male
  Weight: 60 kg

DRUGS (13)
  1. BIBF 1120 (BLIND) [Suspect]
     Indication: NON-SMALL CELL LUNG CANCER
     Route: 048
  2. FORTECORTIN [Suspect]
     Indication: DYSPNOEA
     Route: 048
     Dates: start: 20050821, end: 20050924
  3. OSSOFORTIN FORTE [Concomitant]
     Indication: PROPHYLAXIS
     Route: 048
     Dates: start: 20050406, end: 20050924
  4. FRAXIPARIN [Concomitant]
     Indication: PROPHYLAXIS
     Route: 058
     Dates: start: 20050827, end: 20050925
  5. INHALATION THERAPY [Concomitant]
     Indication: DYSPNOEA
     Route: 055
  6. ARCOXIA [Concomitant]
     Indication: PAIN
     Route: 048
     Dates: end: 20050922
  7. TRAMADOL HCL [Concomitant]
     Indication: PAIN
     Route: 048
     Dates: end: 20050922
  8. HCT 25 [Concomitant]
     Indication: POLYURIA
     Route: 048
     Dates: end: 20050922
  9. NEXIUM [Concomitant]
     Indication: PROPHYLAXIS
     Route: 048
     Dates: end: 20050922
  10. KALINOR RETARD [Concomitant]
     Indication: PROPHYLAXIS
     Route: 048
     Dates: end: 20050922
  11. SAROTEN 75 MG [Concomitant]
     Indication: PROPHYLAXIS
     Route: 048
     Dates: end: 20050922
  12. UNAT [Concomitant]
     Indication: POLYURIA
     Route: 048
     Dates: end: 20050922
  13. DURAGESIC-100 [Concomitant]
     Indication: PAIN
     Route: 062
     Dates: start: 20050923, end: 20050923

REACTIONS (4)
  - ABDOMINAL PAIN UPPER [None]
  - NAUSEA [None]
  - NON-SMALL CELL LUNG CANCER [None]
  - VOMITING [None]
